FAERS Safety Report 7285048-4 (Version None)
Quarter: 2011Q1

REPORT INFORMATION
  Report Type: 
  Country: None (occurrence: None)
  Receive Date: 20110210
  Receipt Date: 20110207
  Transmission Date: 20110831
  Serious: Yes (Hospitalization, Other)
  Sender: FDA-Public Use
  Company Number: CA-PFIZER INC-2010018489

PATIENT
  Age: 34 Year
  Sex: Female
  Weight: 46.5 kg

DRUGS (3)
  1. CHAMPIX [Suspect]
     Indication: SMOKING CESSATION THERAPY
     Dosage: UNK
     Dates: start: 20080101
  2. OXEZE TURBUHALER [Concomitant]
     Dosage: UNK
  3. BRICANYL [Concomitant]
     Dosage: UNK
     Route: 055

REACTIONS (5)
  - VOMITING [None]
  - SUICIDAL IDEATION [None]
  - PANIC ATTACK [None]
  - NAUSEA [None]
  - PRECANCEROUS SKIN LESION [None]
